FAERS Safety Report 11156715 (Version 3)
Quarter: 2015Q4

REPORT INFORMATION
  Report Type: Spontaneous
  Country: US (occurrence: US)
  Receive Date: 20150602
  Receipt Date: 20151029
  Transmission Date: 20160304
  Serious: Yes (Hospitalization, Other)
  Sender: FDA-Public Use
  Company Number: US-GLAXOSMITHKLINE-US2015074947

PATIENT
  Sex: Female
  Weight: 81.63 kg

DRUGS (14)
  1. ADVAIR DISKUS [Suspect]
     Active Substance: FLUTICASONE PROPIONATE\SALMETEROL XINAFOATE
     Indication: CHRONIC OBSTRUCTIVE PULMONARY DISEASE
  2. PANTOPRAZOLE [Concomitant]
     Active Substance: PANTOPRAZOLE SODIUM
  3. ADVAIR DISKUS [Suspect]
     Active Substance: FLUTICASONE PROPIONATE\SALMETEROL XINAFOATE
     Indication: ASTHMA
  4. PRAVACHOL [Concomitant]
     Active Substance: PRAVASTATIN SODIUM
  5. PROLIA [Concomitant]
     Active Substance: DENOSUMAB
  6. OMEPRAZOLE. [Concomitant]
     Active Substance: OMEPRAZOLE
  7. QVAR [Concomitant]
     Active Substance: BECLOMETHASONE DIPROPIONATE
  8. VENTOLIN HFA [Concomitant]
     Active Substance: ALBUTEROL SULFATE
  9. BUDESONIDE. [Concomitant]
     Active Substance: BUDESONIDE
  10. ADVAIR DISKUS [Suspect]
     Active Substance: FLUTICASONE PROPIONATE\SALMETEROL XINAFOATE
     Indication: PULMONARY FIBROSIS
     Dosage: 1 PUFF(S), BID
     Route: 055
  11. FUROSEMIDE. [Concomitant]
     Active Substance: FUROSEMIDE
  12. PREDNISONE. [Concomitant]
     Active Substance: PREDNISONE
  13. TRAMADOL. [Concomitant]
     Active Substance: TRAMADOL
  14. ATENOLOL. [Concomitant]
     Active Substance: ATENOLOL

REACTIONS (15)
  - Vomiting [Recovered/Resolved]
  - Malaise [Not Recovered/Not Resolved]
  - Lung disorder [Unknown]
  - Respiration abnormal [Unknown]
  - Viral infection [Recovered/Resolved]
  - Feeding disorder [Recovered/Resolved]
  - Rotator cuff syndrome [Unknown]
  - Dyspnoea [Unknown]
  - Pain [Unknown]
  - Dehydration [Recovered/Resolved]
  - Bronchitis [Not Recovered/Not Resolved]
  - Oxygen supplementation [Unknown]
  - Breath sounds abnormal [Unknown]
  - Joint range of motion decreased [Unknown]
  - Physiotherapy [Unknown]
